FAERS Safety Report 23948961 (Version 1)
Quarter: 2024Q2

REPORT INFORMATION
  Report Type: Report from Study
  Country: CA (occurrence: CA)
  Receive Date: 20240607
  Receipt Date: 20240607
  Transmission Date: 20240715
  Serious: Yes (Other)
  Sender: FDA-Public Use
  Company Number: None

PATIENT
  Sex: Male

DRUGS (1)
  1. LEUPROLIDE ACETATE [Suspect]
     Active Substance: ISOPROPYL ALCOHOL\LEUPROLIDE ACETATE
     Indication: Prostate cancer
     Dosage: 1 EVERY 3 MONTHS
     Route: 065

REACTIONS (6)
  - Drug ineffective [Unknown]
  - Headache [Unknown]
  - Hot flush [Unknown]
  - Hyperhidrosis [Unknown]
  - Hypophagia [Unknown]
  - Palliative care [Unknown]
